FAERS Safety Report 21491370 (Version 5)
Quarter: 2023Q2

REPORT INFORMATION
  Report Type: Spontaneous
  Country: US (occurrence: US)
  Receive Date: 20221021
  Receipt Date: 20230424
  Transmission Date: 20230722
  Serious: Yes (Hospitalization)
  Sender: FDA-Public Use
  Company Number: US-PFIZER INC-2019260575

PATIENT
  Age: 66 Year
  Sex: Female

DRUGS (1)
  1. XELJANZ XR [Suspect]
     Active Substance: TOFACITINIB CITRATE
     Dosage: 11 MG

REACTIONS (7)
  - Respiratory syncytial virus infection [Unknown]
  - Therapy interrupted [Unknown]
  - Headache [Unknown]
  - Neck injury [Unknown]
  - Illness [Unknown]
  - Hypoaesthesia [Unknown]
  - Platelet count decreased [Unknown]
